FAERS Safety Report 6368649-7 (Version None)
Quarter: 2009Q3

REPORT INFORMATION
  Report Type: 
  Country: None (occurrence: None)
  Receive Date: 20090917
  Receipt Date: 20090917
  Transmission Date: 20100115
  Serious: Yes (Other)
  Sender: FDA-Public Use
  Company Number: None

PATIENT
  Sex: Female
  Weight: 63.5036 kg

DRUGS (2)
  1. SORIATANE [Suspect]
     Indication: PSORIASIS
     Dosage: 1 CAPULE ONCE DAILY ORAL
     Route: 048
     Dates: start: 20090227, end: 20090319
  2. SORIATANE [Suspect]
     Indication: PSORIASIS
     Dosage: APPLY TO AREAS TWICE A DAY TOPICAL
     Route: 061
     Dates: start: 20090617

REACTIONS (7)
  - LIP EXFOLIATION [None]
  - MOVEMENT DISORDER [None]
  - ORAL MUCOSAL EXFOLIATION [None]
  - PAIN IN EXTREMITY [None]
  - PRURITUS [None]
  - RASH GENERALISED [None]
  - SKIN EXFOLIATION [None]
